FAERS Safety Report 15983366 (Version 2)
Quarter: 2019Q2

REPORT INFORMATION
  Report Type: Spontaneous
  Country: IT (occurrence: IT)
  Receive Date: 20190220
  Receipt Date: 20190503
  Transmission Date: 20190711
  Serious: Yes (Other)
  Sender: FDA-Public Use
  Company Number: IT-AUROBINDO-AUR-APL-2019-008587

PATIENT

DRUGS (3)
  1. EFAVIRENZ. [Suspect]
     Active Substance: EFAVIRENZ
     Indication: HIV INFECTION
     Dosage: 600 MILLIGRAM
     Route: 065
  2. ORLISTAT. [Interacting]
     Active Substance: ORLISTAT
     Indication: WEIGHT INCREASED
     Dosage: 180 MILLIGRAM, DAILY (60 MG, TID)
     Route: 065
  3. TRUVADA [Interacting]
     Active Substance: EMTRICITABINE\TENOFOVIR DISOPROXIL FUMARATE
     Indication: HIV INFECTION
     Dosage: UNK (245/200 MG)
     Route: 065

REACTIONS (2)
  - Drug interaction [Recovered/Resolved]
  - Virologic failure [Recovered/Resolved]
